FAERS Safety Report 9937802 (Version 1)
Quarter: 2014Q1

REPORT INFORMATION
  Report Type: Spontaneous
  Country: US (occurrence: US)
  Receive Date: 20140303
  Receipt Date: 20140303
  Transmission Date: 20141002
  Serious: No
  Sender: FDA-Public Use
  Company Number: US-009507513-1402USA009580

PATIENT
  Sex: Male

DRUGS (4)
  1. JANUMET [Suspect]
     Dosage: UNK
     Route: 048
     Dates: start: 2011
  2. JANUMET XR [Suspect]
     Indication: TYPE 2 DIABETES MELLITUS
     Dosage: TAKEN ONCE IN MORNING, ONCE AT NIGHT, BID
     Route: 048
     Dates: start: 2013
  3. METFORMIN [Concomitant]
     Dosage: 1 DF, AT LUNCHTIME UNK
     Route: 048
  4. STARLIX [Concomitant]
     Dosage: 1 DF, QD

REACTIONS (5)
  - Weight decreased [Unknown]
  - Decreased appetite [Not Recovered/Not Resolved]
  - Weight decreased [Not Recovered/Not Resolved]
  - Overdose [Unknown]
  - Inappropriate schedule of drug administration [Unknown]
